FAERS Safety Report 6572211-0 (Version None)
Quarter: 2010Q1

REPORT INFORMATION
  Report Type: 
  Country: None (occurrence: None)
  Receive Date: 20100205
  Receipt Date: 20100125
  Transmission Date: 20100710
  Serious: Yes (Other)
  Sender: FDA-Public Use
  Company Number: BR-WATSON-2010-01030

PATIENT
  Age: 21 Year
  Sex: Male

DRUGS (1)
  1. NANDROLONE DECANOATE (WATSON LABORATORIES) [Suspect]
     Indication: ANAEMIA
     Dosage: UNK
     Dates: start: 19990601, end: 20000101

REACTIONS (1)
  - RETINAL VEIN OCCLUSION [None]
